FAERS Safety Report 14240219 (Version 1)
Quarter: 2017Q4

REPORT INFORMATION
  Report Type: Spontaneous
  Country: US (occurrence: US)
  Receive Date: 20171129
  Receipt Date: 20171129
  Transmission Date: 20180321
  Serious: Yes (Disabling, Other)
  Sender: FDA-Public Use
  Company Number: None

PATIENT
  Age: 58 Year
  Sex: Female
  Weight: 80.55 kg

DRUGS (15)
  1. ABD5-PLUS [Concomitant]
  2. TRAMADOL. [Concomitant]
     Active Substance: TRAMADOL
  3. PECTOSOL-C [Concomitant]
  4. CREAM OF TARTAR [Concomitant]
  5. LORATIDINE [Concomitant]
     Active Substance: LORATADINE
  6. IPS BETA PLUS [Concomitant]
  7. MULTIHANCE [Suspect]
     Active Substance: GADOBENATE DIMEGLUMINE
     Indication: GLIOBLASTOMA
     Dosage: OTHER FREQUENCY:AS ORDERED;?
     Route: 042
  8. GABAPENTIN. [Concomitant]
     Active Substance: GABAPENTIN
  9. CALCIUM D-GLUCARATE [Concomitant]
  10. BLACK SEED [Concomitant]
     Active Substance: UNSPECIFIED INGREDIENT
  11. TOPIRAMATE. [Concomitant]
     Active Substance: TOPIRAMATE
  12. TIZANIDINE. [Concomitant]
     Active Substance: TIZANIDINE
  13. CALCITRATE [Concomitant]
     Active Substance: CALCIUM CITRATE
  14. ASPIRIN. [Concomitant]
     Active Substance: ASPIRIN
  15. MAGOX [Concomitant]

REACTIONS (3)
  - Pain [None]
  - Headache [None]
  - Skin hypertrophy [None]

NARRATIVE: CASE EVENT DATE: 20170214
